FAERS Safety Report 8833049 (Version 1)
Quarter: 2012Q4

REPORT INFORMATION
  Report Type: Spontaneous
  Country: CA (occurrence: None)
  Receive Date: 20121005
  Receipt Date: 20121005
  Transmission Date: 20130627
  Serious: Yes (Other)
  Sender: FDA-Public Use
  Company Number: 2012P1059900

PATIENT
  Age: 9 Year
  Sex: Male

DRUGS (6)
  1. PREDNISONE [Suspect]
     Route: 048
  2. PREDNISONE [Suspect]
     Route: 048
  3. PREDNISONE [Suspect]
     Route: 048
  4. CORTICOSTEROIDS [Suspect]
     Route: 055
  5. CORTICOSTEROIDS [Suspect]
     Route: 055
  6. LEUKOTRIENE INHIBITOR [Concomitant]

REACTIONS (2)
  - Adrenal insufficiency [None]
  - Spinal cord compression [None]
